FAERS Safety Report 11455917 (Version 1)
Quarter: 2015Q3

REPORT INFORMATION
  Report Type: Spontaneous
  Country: AU (occurrence: AU)
  Receive Date: 20150903
  Receipt Date: 20150903
  Transmission Date: 20151125
  Serious: Yes (Other)
  Sender: FDA-Public Use
  Company Number: AU-BAYER-2015-410770

PATIENT
  Age: 41 Year
  Sex: Female

DRUGS (4)
  1. WARFARIN [Concomitant]
     Active Substance: WARFARIN
  2. PROPYLTHIOURACIL. [Suspect]
     Active Substance: PROPYLTHIOURACIL
     Indication: TOXIC GOITRE
     Dosage: 50 MG, BID
  3. ACETYLSALICYLIC ACID({=100 MG) [Suspect]
     Active Substance: ASPIRIN
     Indication: ANTIPHOSPHOLIPID SYNDROME
  4. ENOXAPARIN [Concomitant]
     Active Substance: ENOXAPARIN
     Dosage: 1 MG/KG, BID

REACTIONS (12)
  - Maternal exposure during pregnancy [None]
  - Pre-eclampsia [Recovered/Resolved]
  - Thrombocytopenia [Recovered/Resolved]
  - Cerebral infarction [Recovered/Resolved]
  - Caesarean section [None]
  - Premature labour [Recovered/Resolved]
  - Renal impairment [Recovered/Resolved]
  - Foetal growth restriction [Recovered/Resolved]
  - Pseudovasculitis [Recovered/Resolved]
  - Placental insufficiency [None]
  - Off label use [None]
  - Hepatic function abnormal [Recovered/Resolved]
